FAERS Safety Report 20163358 (Version 1)
Quarter: 2021Q4

REPORT INFORMATION
  Report Type: Spontaneous
  Country: US (occurrence: US)
  Receive Date: 20211209
  Receipt Date: 20211209
  Transmission Date: 20220303
  Serious: Yes (Other)
  Sender: FDA-Public Use
  Company Number: US-SA-SAC20211207000426

PATIENT
  Sex: Female

DRUGS (9)
  1. DUPIXENT [Suspect]
     Active Substance: DUPILUMAB
     Indication: Asthma
     Dosage: 300 MG, QOW
     Route: 058
  2. ALBUTEROL [Concomitant]
     Active Substance: ALBUTEROL
     Dosage: 2.5 MG
  3. ASPIRIN [Concomitant]
     Active Substance: ASPIRIN
  4. LORATADINE [Concomitant]
     Active Substance: LORATADINE
     Dosage: 10 MG
  5. CLOBETASOL [Concomitant]
     Active Substance: CLOBETASOL
  6. PROAIR HFA [Concomitant]
     Active Substance: ALBUTEROL SULFATE
     Dosage: DIGIH AEP 108 (90
  7. SINGULAIR [Concomitant]
     Active Substance: MONTELUKAST SODIUM
     Dosage: 10 MG
  8. TRELEGY ELLIPTA [Concomitant]
     Active Substance: FLUTICASONE FUROATE\UMECLIDINIUM BROMIDE\VILANTEROL TRIFENATATE
     Dosage: ELLI AEP 100-62.5,
  9. TRIAMCINOLONE [Concomitant]
     Active Substance: TRIAMCINOLONE
     Dosage: CRE 0.5%

REACTIONS (3)
  - Pneumonia [Unknown]
  - Nasopharyngitis [Unknown]
  - Cough [Unknown]
